FAERS Safety Report 26181201 (Version 1)
Quarter: 2025Q4

REPORT INFORMATION
  Report Type: Spontaneous
  Country: EU (occurrence: EU)
  Receive Date: 20251221
  Receipt Date: 20251221
  Transmission Date: 20260117
  Serious: Yes (Death, Life-Threatening, Hospitalization, Other)
  Sender: TEVA
  Company Number: None

PATIENT
  Age: 56 Year
  Sex: Female
  Weight: 83 kg

DRUGS (20)
  1. PACLITAXEL [Suspect]
     Active Substance: PACLITAXEL
     Indication: Breast cancer
     Dosage: TIME INTERVAL: CYCLICAL: FORM AND ROUTE- INTRAVENOUS INFUSION
     Route: 042
     Dates: start: 20110616, end: 20110616
  2. PACLITAXEL [Suspect]
     Active Substance: PACLITAXEL
     Indication: Breast cancer
     Dosage: TIME INTERVAL: CYCLICAL: FORM AND ROUTE- INTRAVENOUS INFUSION
     Route: 042
     Dates: start: 20110526, end: 20110526
  3. PACLITAXEL [Suspect]
     Active Substance: PACLITAXEL
     Indication: Breast cancer
     Dosage: TIME INTERVAL: CYCLICAL: FORM AND ROUTE- INTRAVENOUS INFUSION
     Route: 042
     Dates: start: 20110603, end: 20110603
  4. PACLITAXEL [Suspect]
     Active Substance: PACLITAXEL
     Indication: Breast cancer
     Dosage: TIME INTERVAL: CYCLICAL: FORM AND ROUTE- INTRAVENOUS INFUSION
     Route: 042
     Dates: start: 20110512, end: 20110512
  5. PACLITAXEL [Suspect]
     Active Substance: PACLITAXEL
     Indication: Breast cancer
     Dosage: TIME INTERVAL: CYCLICAL: FORM AND ROUTE- INTRAVENOUS INFUSION
     Route: 042
     Dates: start: 20110609, end: 20110609
  6. PACLITAXEL [Suspect]
     Active Substance: PACLITAXEL
     Indication: Breast cancer
     Dosage: TIME INTERVAL: CYCLICAL: FORM AND ROUTE- INTRAVENOUS INFUSION
     Route: 042
     Dates: start: 20110519, end: 20110519
  7. FEMARA [Suspect]
     Active Substance: LETROZOLE
     Indication: Breast cancer
     Route: 048
     Dates: start: 20110828, end: 20111027
  8. AUGMENTIN [Concomitant]
     Active Substance: AMOXICILLIN\CLAVULANATE POTASSIUM
     Indication: Infection
     Dosage: FORM:UNKNOWN
     Dates: start: 20110623, end: 20110630
  9. TAXOTERE [Suspect]
     Active Substance: DOCETAXEL
     Indication: Breast cancer
     Dosage: TIME INTERVAL: CYCLICAL: INFUSION, SINGLE DOSE
     Route: 042
     Dates: start: 20110421, end: 20110421
  10. TAMOXIFEN CITRATE [Suspect]
     Active Substance: TAMOXIFEN CITRATE
     Indication: Breast cancer
     Route: 048
     Dates: start: 20120410, end: 20130910
  11. CYCLOPHOSPHAMIDE [Suspect]
     Active Substance: CYCLOPHOSPHAMIDE
     Indication: Breast cancer
     Dosage: TIME INTERVAL: CYCLICAL: FORM AND ROUTE- INTRAVENOUS INFUSION
     Route: 042
     Dates: start: 20110512, end: 20110512
  12. CYCLOPHOSPHAMIDE [Suspect]
     Active Substance: CYCLOPHOSPHAMIDE
     Indication: Breast cancer
     Dosage: TIME INTERVAL: CYCLICAL: FORM AND ROUTE- INTRAVENOUS INFUSION
     Route: 042
     Dates: start: 20110603, end: 20110603
  13. CYCLOPHOSPHAMIDE [Suspect]
     Active Substance: CYCLOPHOSPHAMIDE
     Indication: Breast cancer
     Dosage: TIME INTERVAL: CYCLICAL: FORM AND ROUTE- INTRAVENOUS INFUSION
     Route: 042
     Dates: start: 20110421, end: 20110616
  14. EXEMESTANE [Suspect]
     Active Substance: EXEMESTANE
     Indication: Breast cancer
     Route: 065
     Dates: start: 20111115, end: 20120403
  15. CYCLOPHOSPHAMIDE [Suspect]
     Active Substance: CYCLOPHOSPHAMIDE
     Indication: Breast cancer
     Dosage: TIME INTERVAL: CYCLICAL: FORM AND ROUTE- INTRAVENOUS INFUSION; FORM:UNKNOWN
     Route: 042
     Dates: start: 20110616, end: 20110616
  16. CYCLOPHOSPHAMIDE [Suspect]
     Active Substance: CYCLOPHOSPHAMIDE
     Indication: Breast cancer
     Dosage: TIME INTERVAL: CYCLICAL: FORM AND ROUTE- INTRAVENOUS INFUSION; FORM:UNKNOWN
     Route: 042
     Dates: start: 20110609, end: 20110609
  17. CYCLOPHOSPHAMIDE [Suspect]
     Active Substance: CYCLOPHOSPHAMIDE
     Indication: Breast cancer
     Dosage: TIME INTERVAL: CYCLICAL: FORM AND ROUTE- INTRAVENOUS INFUSION; FORM:UNKNOWN
     Route: 042
     Dates: start: 20110519, end: 20110519
  18. CYCLOPHOSPHAMIDE [Suspect]
     Active Substance: CYCLOPHOSPHAMIDE
     Indication: Breast cancer
     Dosage: TIME INTERVAL: CYCLICAL: FORM AND ROUTE- INTRAVENOUS INFUSION; FORM:UNKNOWN
     Route: 042
     Dates: start: 20110526, end: 20110526
  19. TAMOXIFEN [Concomitant]
     Active Substance: TAMOXIFEN
     Indication: Breast cancer
     Dosage: FORM:UNKNOWN
     Route: 048
     Dates: start: 2011, end: 201109
  20. FEMARA [Suspect]
     Active Substance: LETROZOLE
     Indication: Hormone therapy
     Route: 065

REACTIONS (46)
  - Cardiac failure [Fatal]
  - Pyrexia [Unknown]
  - Pulmonary arterial hypertension [Unknown]
  - Dyspnoea [Unknown]
  - Blood pressure abnormal [Unknown]
  - Upper respiratory fungal infection [Unknown]
  - Decubitus ulcer [Not Recovered/Not Resolved]
  - Arthralgia [Unknown]
  - Neuromuscular toxicity [Unknown]
  - Device related infection [Unknown]
  - Acute pulmonary oedema [Unknown]
  - Chronic myelomonocytic leukaemia [Fatal]
  - Tachycardia [Unknown]
  - Staphylococcal sepsis [Unknown]
  - Drug eruption [Unknown]
  - Skin toxicity [Recovered/Resolved]
  - Enterocolitis [Unknown]
  - Generalised oedema [Not Recovered/Not Resolved]
  - Acute myeloid leukaemia [Unknown]
  - Pneumonia [Unknown]
  - White blood cell count increased [Unknown]
  - Lung disorder [Unknown]
  - Anxiety [Unknown]
  - Marrow hyperplasia [Unknown]
  - Epistaxis [Unknown]
  - Clostridium difficile infection [Unknown]
  - Nausea [Unknown]
  - Malaise [Unknown]
  - Abdominal pain upper [Unknown]
  - Hyponatraemia [Unknown]
  - Malignant neoplasm progression [Unknown]
  - Headache [Unknown]
  - Diarrhoea [Recovered/Resolved]
  - Cholecystitis [Unknown]
  - Bone pain [Recovered/Resolved]
  - Orthostatic hypotension [Unknown]
  - Atrial fibrillation [Unknown]
  - Hyperkalaemia [Unknown]
  - Insomnia [Unknown]
  - Splenomegaly [Unknown]
  - Dermatitis acneiform [Unknown]
  - Chest pain [Unknown]
  - Pleural effusion [Unknown]
  - Toxic skin eruption [Recovering/Resolving]
  - Sleep disorder [Unknown]
  - Dry mouth [Unknown]

NARRATIVE: CASE EVENT DATE: 20110421
